FAERS Safety Report 10255749 (Version 1)
Quarter: 2014Q2

REPORT INFORMATION
  Report Type: Spontaneous
  Country: IT (occurrence: IT)
  Receive Date: 20140624
  Receipt Date: 20140624
  Transmission Date: 20141212
  Serious: Yes (Life-Threatening)
  Sender: FDA-Public Use
  Company Number: IT-TEVA-489248ISR

PATIENT
  Age: 67 Year
  Sex: Male

DRUGS (1)
  1. CARBOLITHIUM [Suspect]
     Dosage: 750 MILLIGRAM DAILY;
     Route: 048
     Dates: start: 20100101

REACTIONS (1)
  - Toxicity to various agents [Recovering/Resolving]
